FAERS Safety Report 8491709-1 (Version None)
Quarter: 2012Q3

REPORT INFORMATION
  Report Type: 
  Country: None (occurrence: None)
  Receive Date: 20120706
  Receipt Date: 20120628
  Transmission Date: 20120928
  Serious: Yes (Death, Hospitalization)
  Sender: FDA-Public Use
  Company Number: SE-PFIZER INC-2012160462

PATIENT
  Age: 87 Year
  Sex: Male

DRUGS (2)
  1. INSULIN [Concomitant]
     Indication: DIABETES MELLITUS
     Dosage: UNK
     Dates: start: 20120319
  2. CORDARONE [Suspect]
     Indication: ATRIAL FIBRILLATION
     Dosage: UNK
     Route: 048
     Dates: end: 20120321

REACTIONS (5)
  - PNEUMONIA [None]
  - PULMONARY EMBOLISM [None]
  - CARDIAC FIBRILLATION [None]
  - CONFUSIONAL STATE [None]
  - HEPATOTOXICITY [None]
